FAERS Safety Report 12673274 (Version 2)
Quarter: 2016Q3

REPORT INFORMATION
  Report Type: Report from Study
  Country: GB (occurrence: GB)
  Receive Date: 20160822
  Receipt Date: 20160831
  Transmission Date: 20161109
  Serious: Yes (Hospitalization, Other)
  Sender: FDA-Public Use
  Company Number: GB-JNJFOC-20160809927

PATIENT
  Sex: Female

DRUGS (1)
  1. STELARA [Suspect]
     Active Substance: USTEKINUMAB
     Indication: PSORIASIS
     Route: 058
     Dates: start: 20160727

REACTIONS (6)
  - Tremor [Unknown]
  - Syncope [Unknown]
  - Staphylococcal infection [Unknown]
  - Psoriasis [Unknown]
  - Vomiting [Unknown]
  - Depression [Unknown]
